FAERS Safety Report 26070050 (Version 1)
Quarter: 2025Q4

REPORT INFORMATION
  Report Type: Spontaneous
  Country: JP (occurrence: JP)
  Receive Date: 20251120
  Receipt Date: 20251120
  Transmission Date: 20260118
  Serious: Yes (Hospitalization, Other)
  Sender: MERCK SHARP & DOHME LLC
  Company Number: JP-009507513-2351389

PATIENT
  Age: 46 Year
  Sex: Female

DRUGS (4)
  1. PEMBROLIZUMAB [Suspect]
     Active Substance: PEMBROLIZUMAB
     Indication: Clear cell renal cell carcinoma
     Dosage: ON MAY 24 (YEAR UNSPECIFIED, 20XX), THE PATIENT STARTED; ?ON JUNE 21 (YEAR UNSPECIFIED, 20XX), PE...
  2. LENVATINIB [Suspect]
     Active Substance: LENVATINIB
     Indication: Clear cell renal cell carcinoma
     Dosage: ON MAY 24 (YEAR UNSPECIFIED, 20XX), THE PATIENT STARTED ;?STRENGTH:20 MG
  3. LENVATINIB [Suspect]
     Active Substance: LENVATINIB
     Indication: Clear cell renal cell carcinoma
     Dosage: ON JUNE 21 (YEAR UNSPECIFIED, 20XX), LENVATINIB RESUMED (STRENGTH:14 MG);?ON AUGUST 02 (YEAR UNSP...
  4. LENVATINIB [Suspect]
     Active Substance: LENVATINIB
     Indication: Clear cell renal cell carcinoma
     Dosage: ON NOVEMBER 15 (YEAR UNSPECIFIED, 20XX), LENVATINIB CHANGED TO ^20 MG -14 MG -0 MG (2 DAYS ON AND...

REACTIONS (16)
  - Monoplegia [Unknown]
  - Proteinuria [Unknown]
  - C-reactive protein increased [Unknown]
  - Adverse event [Unknown]
  - Anorectal disorder [Unknown]
  - Urinary retention [Unknown]
  - Pyrexia [Unknown]
  - Bladder disorder [Unknown]
  - Hypothyroidism [Unknown]
  - Decreased appetite [Unknown]
  - Rash [Unknown]
  - Liver disorder [Unknown]
  - Therapy partial responder [Unknown]
  - Urinary tract infection [Unknown]
  - Malignant neoplasm progression [Unknown]
  - Muscular weakness [Unknown]
